FAERS Safety Report 9305218 (Version 2)
Quarter: 2013Q3

REPORT INFORMATION
  Report Type: Spontaneous
  Country: DE (occurrence: DE)
  Receive Date: 20130523
  Receipt Date: 20130830
  Transmission Date: 20140515
  Serious: Yes (Other)
  Sender: FDA-Public Use
  Company Number: DE-BAYER-2013-061168

PATIENT
  Age: 85 Year
  Sex: Female

DRUGS (2)
  1. CIPROBAY [Suspect]
     Indication: URINARY TRACT INFECTION
     Dosage: UNK
  2. ZOCOR [Interacting]

REACTIONS (4)
  - Blood creatine phosphokinase increased [None]
  - Rhabdomyolysis [None]
  - Traumatic renal injury [None]
  - Drug interaction [None]
